FAERS Safety Report 5397762-6 (Version None)
Quarter: 2007Q3

REPORT INFORMATION
  Report Type: 
  Country: None (occurrence: None)
  Receive Date: 20070726
  Receipt Date: 20070720
  Transmission Date: 20080115
  Serious: Yes (Hospitalization)
  Sender: FDA-Public Use
  Company Number: B0473791A

PATIENT
  Age: 1 Year
  Weight: 8.8 kg

DRUGS (10)
  1. CLAVAMOX [Suspect]
     Indication: OTITIS MEDIA ACUTE
     Dosage: .7G TWICE PER DAY
     Route: 048
     Dates: start: 20070519, end: 20070526
  2. ASVERIN [Suspect]
     Indication: NASOPHARYNGITIS
     Dosage: 1.3ML THREE TIMES PER DAY
     Route: 048
     Dates: start: 20070410
  3. BRICANYL [Suspect]
     Indication: NASOPHARYNGITIS
     Dosage: 1ML THREE TIMES PER DAY
     Route: 048
     Dates: start: 20070410
  4. TAVEGYL [Suspect]
     Indication: NASOPHARYNGITIS
     Dosage: 1.3ML THREE TIMES PER DAY
     Route: 048
  5. FLOMOX [Suspect]
     Indication: NASOPHARYNGITIS
     Dosage: .2G THREE TIMES PER DAY
     Route: 048
     Dates: start: 20070418, end: 20070519
  6. ONON [Suspect]
     Indication: NASOPHARYNGITIS
     Dosage: .3G TWICE PER DAY
     Route: 048
     Dates: start: 20070421
  7. ZADITEN [Suspect]
     Indication: NASOPHARYNGITIS
     Dosage: .6ML THREE TIMES PER DAY
     Route: 048
     Dates: start: 20070516
  8. BIOFERMIN R [Suspect]
     Indication: CONSTIPATION
     Dosage: .16G THREE TIMES PER DAY
     Route: 048
     Dates: start: 20070519, end: 20070501
  9. MUCODYNE [Suspect]
     Indication: OTITIS MEDIA ACUTE
     Dosage: 1.6ML THREE TIMES PER DAY
     Route: 048
     Dates: start: 20070526
  10. PERIACTIN [Suspect]
     Dosage: 1.5ML TWICE PER DAY
     Route: 048
     Dates: end: 20070626

REACTIONS (2)
  - ERYTHEMA MULTIFORME [None]
  - PYREXIA [None]
